FAERS Safety Report 5564271-0 (Version None)
Quarter: 2007Q4

REPORT INFORMATION
  Report Type: 
  Country: None (occurrence: None)
  Receive Date: 20071212
  Receipt Date: 20071205
  Transmission Date: 20080405
  Serious: Yes (Other)
  Sender: FDA-Public Use
  Company Number: PHFR2007GB03452

PATIENT
  Age: 81 Year
  Sex: Female

DRUGS (5)
  1. DICLOFENAC SODIUM [Suspect]
     Indication: PUBIC PAIN
     Dosage: 50 MG, TID
     Dates: start: 20070730, end: 20070807
  2. CO-CODAMOL (NGX)(ACETAMINOPHEN (PARACETMAOL), CODEINE PHOSPHATE) UNKNO [Suspect]
     Indication: PUBIC PAIN
     Dosage: PRN
     Dates: start: 20070807, end: 20070810
  3. CODEINE PHOSPHATE AND ACETAMINOPHEN [Concomitant]
  4. AMOXICILLIN [Concomitant]
  5. FERROUS SULPHATE (FERROUS SULFATE) [Concomitant]

REACTIONS (2)
  - DRUG EXPOSURE DURING PREGNANCY [None]
  - INTRA-UTERINE DEATH [None]
